FAERS Safety Report 20229323 (Version 1)
Quarter: 2021Q4

REPORT INFORMATION
  Report Type: Spontaneous
  Country: DE (occurrence: DE)
  Receive Date: 20211225
  Receipt Date: 20211225
  Transmission Date: 20220303
  Serious: Yes (Hospitalization)
  Sender: FDA-Public Use
  Company Number: DE-ADRED-07106-01

PATIENT
  Age: 69 Year
  Sex: Female

DRUGS (14)
  1. PANTOPRAZOLE [Suspect]
     Active Substance: PANTOPRAZOLE
     Dosage: 80 MILLIGRAM DAILY;  1-0-1-0,
     Route: 048
  2. SIMVASTATIN [Suspect]
     Active Substance: SIMVASTATIN
     Dosage: 20 MILLIGRAM DAILY;  0-0-1-0,
     Route: 048
  3. ALLOPURINOL [Suspect]
     Active Substance: ALLOPURINOL
     Dosage: 300 MILLIGRAM DAILY;  0-0-1-0,
     Route: 048
  4. CARBAMAZEPINE [Suspect]
     Active Substance: CARBAMAZEPINE
     Dosage: 4 DOSAGE FORMS DAILY; 200 MG, 2-0-2-0,
     Route: 048
  5. HYDROCHLOROTHIAZIDE\RAMIPRIL [Suspect]
     Active Substance: HYDROCHLOROTHIAZIDE\RAMIPRIL
     Dosage: 2 DOSAGE FORMS DAILY; 12.5|2.5 MG, 2-0-0-0
     Route: 048
  6. METOPROLOL [Concomitant]
     Active Substance: METOPROLOL
     Dosage: 95 MILLIGRAM DAILY; 1-0-1-0
     Route: 048
  7. Insulin-Isophan [Concomitant]
     Dosage: 12 DOSAGE FORMS DAILY; ?1 IU, 0-0-0-12, PRE-FILLED SYRINGES,INSULIN-ISOPHAN (HUMAN)
     Route: 058
  8. INSULIN HUMAN [Concomitant]
     Active Substance: INSULIN HUMAN
     Dosage: 1 IU, 8-6-8-0, CYLINDRICAL AMPOULES
     Route: 058
  9. ESCITALOPRAM [Concomitant]
     Active Substance: ESCITALOPRAM OXALATE
     Dosage: 10 MILLIGRAM DAILY;   1-0-0-0
     Route: 048
  10. CYANOCOBALAMIN [Concomitant]
     Active Substance: CYANOCOBALAMIN
     Dosage: 1 MG, ACCORDING TO THE SCHEME, AMPOULES, (VITAMIN B12)
     Route: 030
  11. TRAMADOL [Concomitant]
     Active Substance: TRAMADOL
     Dosage: 100 MG, REQUIREMENT, DROPS
     Route: 048
  12. ASPIRIN [Concomitant]
     Active Substance: ASPIRIN
     Dosage: 100 MILLIGRAM DAILY;   1-0-0-0
     Route: 048
  13. Fluticason/Salmeterol [Concomitant]
     Dosage: 2 DOSAGE FORMS DAILY; 250 | 25 UG, 1-0-1-0, METERED DOSE INHALER
     Route: 055
  14. APIXABAN [Concomitant]
     Active Substance: APIXABAN
     Dosage: 10 MILLIGRAM DAILY; 1-0-1-0
     Route: 048

REACTIONS (7)
  - Abdominal pain upper [Unknown]
  - Diarrhoea [Unknown]
  - Abdominal pain [Unknown]
  - Vomiting [Unknown]
  - Diarrhoea [Unknown]
  - Vomiting [Unknown]
  - Lipase increased [Unknown]
